FAERS Safety Report 8189356-4 (Version None)
Quarter: 2012Q1

REPORT INFORMATION
  Report Type: 
  Country: None (occurrence: None)
  Receive Date: 20120307
  Receipt Date: 20120229
  Transmission Date: 20120608
  Serious: Yes (Hospitalization, Other)
  Sender: FDA-Public Use
  Company Number: NL-GENZYME-CLOF-1002019

PATIENT
  Sex: Female
  Weight: 84 kg

DRUGS (7)
  1. METHOTREXATE [Suspect]
     Indication: ACUTE LYMPHOCYTIC LEUKAEMIA
     Dosage: 1000 MG, UNK
     Route: 042
     Dates: start: 20110704, end: 20110711
  2. EVOLTRA [Suspect]
     Indication: ACUTE LYMPHOCYTIC LEUKAEMIA
     Dosage: 63 MG/DAY, UNK
     Route: 042
     Dates: start: 20110513, end: 20110517
  3. LEUCOVORIN CALCIUM [Suspect]
     Indication: ACUTE LYMPHOCYTIC LEUKAEMIA
     Dosage: 45 MG, IV/ PO
     Route: 050
     Dates: start: 20110705, end: 20110706
  4. PREDNISONE TAB [Suspect]
     Indication: ACUTE LYMPHOCYTIC LEUKAEMIA
     Dosage: 25 MG, UNK
     Route: 037
     Dates: start: 20110701, end: 20110701
  5. ETOPOSIDE [Suspect]
     Indication: ACUTE LYMPHOCYTIC LEUKAEMIA
     Dosage: 250 MG, UNK
     Route: 042
     Dates: start: 20110701, end: 20110708
  6. METHOTREXATE [Suspect]
     Dosage: 15 MG, UNK
     Route: 037
     Dates: start: 20110701, end: 20110701
  7. CYTARABINE [Suspect]
     Indication: ACUTE LYMPHOCYTIC LEUKAEMIA
     Dosage: 400 MG, UNK
     Route: 042
     Dates: start: 20110701, end: 20110708

REACTIONS (1)
  - PULMONARY EMBOLISM [None]
